FAERS Safety Report 5165001-7 (Version None)
Quarter: 2006Q4

REPORT INFORMATION
  Report Type: 
  Country: None (occurrence: None)
  Receive Date: 20061205
  Receipt Date: 20030103
  Transmission Date: 20070319
  Serious: Yes (Hospitalization)
  Sender: FDA-Public Use
  Company Number: FR-BOEHRINGER INGELHEIM PHARMACEUTICALS, INC.-2003-FF-00006FF

PATIENT
  Sex: Female
  Weight: 3.2 kg

DRUGS (6)
  1. VIRAMUNE [Suspect]
     Indication: PROPHYLAXIS AGAINST HIV INFECTION
     Route: 048
     Dates: start: 20020829, end: 20020829
  2. VIRAMUNE [Suspect]
     Indication: HIV INFECTION
     Route: 064
  3. VIDEX [Suspect]
     Indication: HIV INFECTION
     Route: 064
     Dates: end: 20020827
  4. EPIVIR [Suspect]
     Indication: HIV INFECTION
     Route: 064
     Dates: end: 20020827
  5. KALETRA [Suspect]
     Indication: HIV INFECTION
     Route: 064
     Dates: end: 20020827
  6. KALETRA [Concomitant]
     Indication: PROPHYLAXIS AGAINST HIV INFECTION
     Route: 048
     Dates: start: 20020101

REACTIONS (6)
  - BRADYCARDIA [None]
  - CAESAREAN SECTION [None]
  - DRUG EXPOSURE DURING PREGNANCY [None]
  - MALAISE [None]
  - PALLOR [None]
  - SYNCOPE VASOVAGAL [None]
